FAERS Safety Report 8537387-4 (Version None)
Quarter: 2012Q3

REPORT INFORMATION
  Report Type: 
  Country: None (occurrence: None)
  Receive Date: 20120725
  Receipt Date: 20120718
  Transmission Date: 20120928
  Serious: Yes (Hospitalization)
  Sender: FDA-Public Use
  Company Number: CZ-PFIZER INC-2012113940

PATIENT
  Age: 43 Year
  Sex: Female

DRUGS (5)
  1. SULFASALAZINE [Suspect]
     Dosage: 500 MG, 1X/DAY
     Route: 048
     Dates: start: 20120321, end: 20120322
  2. MEDROL [Concomitant]
  3. SURGAM [Concomitant]
  4. ACITRETIN [Concomitant]
  5. MINERVA [Concomitant]

REACTIONS (1)
  - ACUTE GENERALISED EXANTHEMATOUS PUSTULOSIS [None]
